FAERS Safety Report 4450701-4 (Version None)
Quarter: 2004Q3

REPORT INFORMATION
  Report Type: 
  Country: None (occurrence: None)
  Receive Date: 20040914
  Receipt Date: 20040914
  Transmission Date: 20050211
  Serious: Yes (Hospitalization)
  Sender: FDA-Public Use
  Company Number: None

PATIENT
  Age: 49 Year
  Sex: Female
  Weight: 61 kg

DRUGS (15)
  1. OXYCODONE AND ACETAMINOPHEN [Suspect]
     Indication: PAIN IN EXTREMITY
     Dosage: 1 TABLET PO QID PRN
     Route: 048
     Dates: start: 20040429, end: 20040430
  2. ISOSORBIDE MONONITRATE [Concomitant]
  3. SPIRONOLACTONE [Concomitant]
  4. FESO4 [Concomitant]
  5. INSULIN REG HUMAN 100 U/ML INJ NOVOLIN [Concomitant]
  6. INSULIN NPH HUMAN 100 U/ML INJ NOVOLIN [Concomitant]
  7. SIMVASTATIN [Concomitant]
  8. LEUPROLIDE ACETATE [Concomitant]
  9. ASPIRIN [Concomitant]
  10. WARFARIN SODIUM [Concomitant]
  11. ETHACRYNIC ACID [Concomitant]
  12. POTASSIUM CHLORIDE [Concomitant]
  13. CLONAZEPAM [Concomitant]
  14. LANOXIN [Concomitant]
  15. METOPROLOL SUCCINATE [Concomitant]

REACTIONS (6)
  - BURNING SENSATION [None]
  - COUGH [None]
  - EYE SWELLING [None]
  - PERIORBITAL OEDEMA [None]
  - SWOLLEN TONGUE [None]
  - TACHYCARDIA [None]
